FAERS Safety Report 6414615-2 (Version None)
Quarter: 2009Q4

REPORT INFORMATION
  Report Type: 
  Country: None (occurrence: None)
  Receive Date: 20091026
  Receipt Date: 20090928
  Transmission Date: 20100525
  Serious: Yes (Other)
  Sender: FDA-Public Use
  Company Number: GB-AVENTIS-200921756GDDC

PATIENT
  Age: 80 Year
  Sex: Male

DRUGS (5)
  1. EUGLUCON [Suspect]
     Dates: start: 20080101
  2. ARICEPT [Concomitant]
  3. ZYRTEC [Concomitant]
  4. GRAMALIL [Concomitant]
  5. METFORMIN HCL [Concomitant]

REACTIONS (2)
  - ANAEMIA [None]
  - HYPOGLYCAEMIA [None]
